FAERS Safety Report 9421123 (Version 3)
Quarter: 2015Q1

REPORT INFORMATION
  Report Type: Spontaneous
  Country: JP (occurrence: JP)
  Receive Date: 20130725
  Receipt Date: 20150105
  Transmission Date: 20150721
  Serious: Yes (Other)
  Sender: FDA-Public Use
  Company Number: PHHY2013JP058081

PATIENT
  Age: 29 Year
  Sex: Female
  Weight: 50 kg

DRUGS (9)
  1. ALDOMET [Suspect]
     Active Substance: METHYLDOPA
     Dosage: 10 DF (125 MG) QD
     Route: 048
     Dates: start: 20090907
  2. APRESOLINE HYDROCHLORIDE [Suspect]
     Active Substance: HYDRALAZINE HYDROCHLORIDE
     Dosage: 4 DF, (10MG) QD
     Route: 048
     Dates: start: 20090828
  3. ALDOMET [Suspect]
     Active Substance: METHYLDOPA
     Indication: GESTATIONAL HYPERTENSION
     Dosage: 6 DF (125 MG) QD
     Route: 048
     Dates: start: 20090821
  4. ALDOMET [Suspect]
     Active Substance: METHYLDOPA
     Dosage: 12 DF (125 MG) QD
     Route: 048
     Dates: start: 20090828
  5. AMLODIPINE [Concomitant]
     Active Substance: AMLODIPINE BESYLATE
     Indication: GESTATIONAL HYPERTENSION
     Dosage: 5 MG, UNK
     Route: 048
     Dates: start: 20090925
  6. APRESOLINE HYDROCHLORIDE [Suspect]
     Active Substance: HYDRALAZINE HYDROCHLORIDE
     Dosage: 5 DF (10 MG) QD
     Route: 048
     Dates: start: 20090907
  7. NIFEDIPINE. [Suspect]
     Active Substance: NIFEDIPINE
     Indication: GESTATIONAL HYPERTENSION
     Dosage: 20 MG, UNK
     Route: 048
     Dates: start: 20090908
  8. METHYLDOPA. [Suspect]
     Active Substance: METHYLDOPA
     Indication: GESTATIONAL HYPERTENSION
     Route: 048
  9. APRESOLINE HYDROCHLORIDE [Suspect]
     Active Substance: HYDRALAZINE HYDROCHLORIDE
     Indication: GESTATIONAL HYPERTENSION
     Dosage: 3 DF (10 MG) QD
     Route: 048
     Dates: start: 20090824

REACTIONS (6)
  - Maternal exposure during pregnancy [Recovered/Resolved]
  - Blood pressure inadequately controlled [Unknown]
  - Threatened labour [Unknown]
  - Premature delivery [Unknown]
  - Pre-eclampsia [Unknown]
  - Drug ineffective [Unknown]

NARRATIVE: CASE EVENT DATE: 20090915
